FAERS Safety Report 8121176-9 (Version None)
Quarter: 2012Q1

REPORT INFORMATION
  Report Type: 
  Country: None (occurrence: None)
  Receive Date: 20120203
  Receipt Date: 20120123
  Transmission Date: 20120608
  Serious: Yes (Hospitalization, Other)
  Sender: FDA-Public Use
  Company Number: 2012P1003321

PATIENT
  Age: 88 Year
  Sex: Female

DRUGS (1)
  1. DIGOXIN [Suspect]
     Indication: CARDIAC FAILURE
     Dosage: 0.25 MG;QD

REACTIONS (12)
  - LETHARGY [None]
  - LOSS OF CONSCIOUSNESS [None]
  - MENTAL IMPAIRMENT [None]
  - VOMITING [None]
  - SINUS BRADYCARDIA [None]
  - NAUSEA [None]
  - HYPOTENSION [None]
  - RENAL FAILURE ACUTE [None]
  - DECREASED APPETITE [None]
  - HYPERKALAEMIA [None]
  - DIALYSIS [None]
  - TOXICITY TO VARIOUS AGENTS [None]
